FAERS Safety Report 4520681-1 (Version None)
Quarter: 2004Q4

REPORT INFORMATION
  Report Type: 
  Country: None (occurrence: None)
  Receive Date: 20041203
  Receipt Date: 20041201
  Transmission Date: 20050328
  Serious: Yes (Other)
  Sender: FDA-Public Use
  Company Number: MESA 2004-019

PATIENT
  Age: 25 Year
  Sex: Female

DRUGS (1)
  1. MESALAMINE [Suspect]
     Indication: COLITIS ULCERATIVE
     Dosage: 4 G PROGRESSIVELY DECREASED AND DISCONTINUED, PO
     Route: 048
     Dates: start: 20030501, end: 20040901

REACTIONS (4)
  - AUTOIMMUNE HEPATITIS [None]
  - CHROMATURIA [None]
  - GLOSSODYNIA [None]
  - TONGUE DISORDER [None]
